FAERS Safety Report 4669019-X (Version None)
Quarter: 2005Q2

REPORT INFORMATION
  Report Type: 
  Country: None (occurrence: None)
  Receive Date: 20050523
  Receipt Date: 20050512
  Transmission Date: 20051028
  Serious: Yes (Hospitalization)
  Sender: FDA-Public Use
  Company Number: FR-JNJFOC-20050503062

PATIENT
  Age: 95 Year
  Sex: Female

DRUGS (2)
  1. REMINYL [Suspect]
     Route: 049
  2. REMINYL [Suspect]
     Route: 049

REACTIONS (3)
  - INTRAVENTRICULAR HAEMORRHAGE [None]
  - MALAISE [None]
  - RESPIRATORY ARREST [None]
